FAERS Safety Report 6915930-6 (Version None)
Quarter: 2010Q3

REPORT INFORMATION
  Report Type: 
  Country: None (occurrence: None)
  Receive Date: 20100809
  Receipt Date: 20100809
  Transmission Date: 20110219
  Serious: Yes (Hospitalization, Other)
  Sender: FDA-Public Use
  Company Number: None

PATIENT
  Age: 45 Year
  Sex: Female
  Weight: 77.1115 kg

DRUGS (1)
  1. YAZ [Suspect]
     Indication: HORMONE LEVEL ABNORMAL
     Dosage: ONE TABLET DAILY PO
     Route: 048
     Dates: start: 20080710, end: 20100603

REACTIONS (3)
  - BILE DUCT OBSTRUCTION [None]
  - CHOLECYSTITIS ACUTE [None]
  - CHOLELITHIASIS [None]
